FAERS Safety Report 5971335-6 (Version None)
Quarter: 2008Q4

REPORT INFORMATION
  Report Type: 
  Country: None (occurrence: None)
  Receive Date: 20081128
  Receipt Date: 20081124
  Transmission Date: 20090506
  Serious: Yes (Hospitalization)
  Sender: FDA-Public Use
  Company Number: AU-PFIZER INC-2008059150

PATIENT
  Sex: Male
  Weight: 99 kg

DRUGS (15)
  1. MARAVIROC [Suspect]
     Indication: HIV INFECTION
     Route: 048
     Dates: start: 20080312
  2. RALTEGRAVIR [Suspect]
     Indication: HIV INFECTION
     Route: 048
     Dates: start: 20080312
  3. ETRAVIRINE [Suspect]
     Indication: HIV INFECTION
     Route: 048
     Dates: start: 20080312
  4. TENOFOVIR [Suspect]
     Indication: HIV INFECTION
     Route: 048
     Dates: start: 20080312
  5. ABACAVIR SULFATE/LAMIVUDINE [Suspect]
     Indication: HIV INFECTION
     Dosage: TEXT:600/300 MG
     Route: 048
     Dates: start: 20080312
  6. LYRICA [Concomitant]
     Route: 048
     Dates: start: 20060101
  7. SOMAC [Concomitant]
     Route: 048
     Dates: start: 20070101
  8. FLUCONAZOLE [Concomitant]
     Route: 048
     Dates: start: 20080331
  9. AZITHROMYCIN [Concomitant]
     Route: 048
     Dates: start: 20070101
  10. DOCUSATE [Concomitant]
     Route: 048
  11. ESOMEPRAZOLE MAGNESIUM [Concomitant]
     Route: 048
  12. PRAZSOIN HCL [Concomitant]
  13. VALPROATE SODIUM [Concomitant]
     Route: 048
     Dates: start: 20050101
  14. SOTALOL HCL [Concomitant]
     Route: 048
  15. VALACYCLOVIR HCL [Concomitant]
     Route: 048
     Dates: start: 20000101

REACTIONS (1)
  - POLYARTHRITIS [None]
